FAERS Safety Report 10195501 (Version 3)
Quarter: 2014Q2

REPORT INFORMATION
  Report Type: Spontaneous
  Country: FR (occurrence: FR)
  Receive Date: 20140526
  Receipt Date: 20140612
  Transmission Date: 20141212
  Serious: Yes (Hospitalization)
  Sender: FDA-Public Use
  Company Number: FR-ROCHE-1385088

PATIENT
  Age: 43 Year
  Sex: Female
  Weight: 50 kg

DRUGS (7)
  1. ROACTEMRA [Suspect]
     Indication: RHEUMATOID ARTHRITIS
     Route: 041
     Dates: start: 20140318, end: 20140318
  2. CORTANCYL [Suspect]
     Indication: RHEUMATOID ARTHRITIS
     Route: 048
     Dates: start: 201307
  3. CORTANCYL [Suspect]
     Route: 048
  4. ARAVA [Suspect]
     Indication: RHEUMATOID ARTHRITIS
     Route: 048
     Dates: start: 20131115
  5. TRIATEC (FRANCE) [Concomitant]
     Indication: HYPERTENSION
     Route: 048
  6. INEXIUM [Concomitant]
     Route: 065
  7. LOXEN (FRANCE) [Concomitant]
     Indication: HYPERTENSION
     Route: 048

REACTIONS (4)
  - Meningitis pneumococcal [Recovered/Resolved]
  - Otitis media acute [Recovered/Resolved]
  - Thrombophlebitis [Recovered/Resolved]
  - Sinusitis [Recovered/Resolved]
